FAERS Safety Report 19706329 (Version 1)
Quarter: 2021Q3

REPORT INFORMATION
  Report Type: Report from Study
  Country: None (occurrence: US)
  Receive Date: 20210817
  Receipt Date: 20210817
  Transmission Date: 20211014
  Serious: Yes (Hospitalization, Other)
  Sender: FDA-Public Use
  Company Number: US-ABBVIE-21K-163-4035531-00

PATIENT
  Age: 67 Year
  Sex: Female

DRUGS (10)
  1. MODERNA COVID?19 VACCINE [Suspect]
     Active Substance: CX-024414
     Route: 030
     Dates: start: 20210318, end: 20210318
  2. VITAMIN D3 [Concomitant]
     Active Substance: CHOLECALCIFEROL
     Indication: SUPPLEMENTATION THERAPY
  3. POTASSIUM [Concomitant]
     Active Substance: POTASSIUM
     Indication: SUPPLEMENTATION THERAPY
  4. MODERNA COVID?19 VACCINE [Suspect]
     Active Substance: CX-024414
     Indication: COVID-19 IMMUNISATION
     Route: 030
     Dates: start: 20210217, end: 20210217
  5. HUMIRA [Suspect]
     Active Substance: ADALIMUMAB
     Indication: CROHN^S DISEASE
     Route: 058
     Dates: start: 2013
  6. MERCAPTOPURINE. [Concomitant]
     Active Substance: MERCAPTOPURINE
     Indication: CROHN^S DISEASE
  7. PROPRANOLOL [Concomitant]
     Active Substance: PROPRANOLOL HYDROCHLORIDE
     Indication: HEART RATE
  8. PANTOPRAZOLE [Concomitant]
     Active Substance: PANTOPRAZOLE
     Indication: GASTROOESOPHAGEAL REFLUX DISEASE
  9. FOLIC ACID. [Concomitant]
     Active Substance: FOLIC ACID
     Indication: CROHN^S DISEASE
  10. CREON [Concomitant]
     Active Substance: PANCRELIPASE AMYLASE\PANCRELIPASE LIPASE\PANCRELIPASE PROTEASE
     Indication: DYSPEPSIA

REACTIONS (15)
  - Nasopharyngitis [Not Recovered/Not Resolved]
  - Anaemia [Not Recovered/Not Resolved]
  - Nervousness [Not Recovered/Not Resolved]
  - Nasopharyngitis [Recovered/Resolved]
  - Intestinal obstruction [Recovered/Resolved]
  - Emphysema [Recovered/Resolved]
  - Dysphagia [Not Recovered/Not Resolved]
  - COVID-19 [Recovered/Resolved]
  - Large intestinal stenosis [Not Recovered/Not Resolved]
  - Arthralgia [Not Recovered/Not Resolved]
  - Pain in extremity [Recovered/Resolved]
  - Device issue [Recovered/Resolved]
  - Deep vein thrombosis [Recovered/Resolved]
  - Fall [Recovering/Resolving]
  - Pain in extremity [Recovered/Resolved]

NARRATIVE: CASE EVENT DATE: 2015
